FAERS Safety Report 12411007 (Version 1)
Quarter: 2016Q2

REPORT INFORMATION
  Report Type: Spontaneous
  Country: US (occurrence: None)
  Receive Date: 20160526
  Receipt Date: 20160526
  Transmission Date: 20160815
  Serious: No
  Sender: FDA-Public Use
  Company Number: None

PATIENT
  Age: 61 Year
  Sex: Male

DRUGS (9)
  1. LEFLUNOMIDE. [Concomitant]
     Active Substance: LEFLUNOMIDE
  2. TRAMADOL. [Concomitant]
     Active Substance: TRAMADOL
  3. MULTI. VIT [Concomitant]
  4. TYLENOL [Concomitant]
     Active Substance: ACETAMINOPHEN
  5. MELOXICAM. [Concomitant]
     Active Substance: MELOXICAM
  6. ENBREL [Suspect]
     Active Substance: ETANERCEPT
     Indication: RHEUMATOID ARTHRITIS
     Route: 058
  7. VIT D^3 [Concomitant]
  8. PREDNISONE. [Concomitant]
     Active Substance: PREDNISONE
  9. PROBIOTIC [Concomitant]
     Active Substance: PROBIOTICS NOS

REACTIONS (4)
  - Cough [None]
  - Malaise [None]
  - Condition aggravated [None]
  - Erythema [None]

NARRATIVE: CASE EVENT DATE: 201604
